FAERS Safety Report 14496981 (Version 3)
Quarter: 2018Q2

REPORT INFORMATION
  Report Type: Spontaneous
  Country: FR (occurrence: FR)
  Receive Date: 20180207
  Receipt Date: 20180421
  Transmission Date: 20180711
  Serious: Yes (Other)
  Sender: FDA-Public Use
  Company Number: FR-AUROBINDO-AUR-APL-2018-005012

PATIENT
  Age: 8 Year
  Sex: Male

DRUGS (9)
  1. INDINAVIR [Suspect]
     Active Substance: INDINAVIR
     Indication: HIV INFECTION
     Dosage: UNK ()
     Route: 064
  2. ZIDOVUDINE. [Suspect]
     Active Substance: ZIDOVUDINE
     Indication: HIV INFECTION
     Dosage: ()
     Route: 064
  3. DIDANOSINE. [Suspect]
     Active Substance: DIDANOSINE
     Indication: HIV INFECTION
     Dosage: UNK ()
     Route: 064
  4. DIDANOSINE. [Suspect]
     Active Substance: DIDANOSINE
     Dosage: UNK ()
     Route: 064
  5. RITONAVIR. [Suspect]
     Active Substance: RITONAVIR
     Indication: HIV INFECTION
     Dosage: UNK ()
     Route: 064
  6. RITONAVIR. [Suspect]
     Active Substance: RITONAVIR
     Dosage: UNK ()
     Route: 064
  7. ZIDOVUDINE. [Suspect]
     Active Substance: ZIDOVUDINE
     Dosage: ()
     Route: 064
  8. INDINAVIR [Suspect]
     Active Substance: INDINAVIR
     Dosage: UNK ()
     Route: 064
  9. ZIDOVUDINE. [Suspect]
     Active Substance: ZIDOVUDINE
     Dosage: UNK ()
     Route: 064

REACTIONS (3)
  - Premature baby [Unknown]
  - Acute lymphocytic leukaemia [Unknown]
  - Foetal exposure during pregnancy [Recovered/Resolved]
